FAERS Safety Report 8126371-0 (Version None)
Quarter: 2012Q1

REPORT INFORMATION
  Report Type: 
  Country: None (occurrence: None)
  Receive Date: 20120209
  Receipt Date: 20120130
  Transmission Date: 20120608
  Serious: Yes (Other)
  Sender: FDA-Public Use
  Company Number: NL-MERCK-1111NLD00003

PATIENT
  Age: 20 Year
  Sex: Female

DRUGS (4)
  1. COLESEVELAM HYDROCHLORIDE [Suspect]
     Route: 048
     Dates: start: 20090928, end: 20091218
  2. ETHINYL ESTRADIOL AND LEVONORGESTREL [Concomitant]
     Indication: CONTRACEPTION
     Route: 048
     Dates: start: 20040802, end: 20091218
  3. ATORVASTATIN [Suspect]
     Route: 048
     Dates: start: 20051215, end: 20091218
  4. ZETIA [Suspect]
     Indication: HYPERCHOLESTEROLAEMIA
     Route: 048
     Dates: start: 20070913, end: 20091218

REACTIONS (3)
  - MATERNAL EXPOSURE TIMING UNSPECIFIED [None]
  - ABORTION SPONTANEOUS [None]
  - BLIGHTED OVUM [None]
